FAERS Safety Report 4761029-7 (Version None)
Quarter: 2005Q3

REPORT INFORMATION
  Report Type: 
  Country: None (occurrence: None)
  Receive Date: 20050901
  Receipt Date: 20050826
  Transmission Date: 20060218
  Serious: Yes (Life-Threatening, Hospitalization)
  Sender: FDA-Public Use
  Company Number: TAP0RADR11632

PATIENT
  Age: 65 Year
  Sex: Male

DRUGS (5)
  1. LUPRON DEPOT [Suspect]
     Indication: PROSTATE CANCER
     Dosage: 7.5  MG, INTRA-MUSCULAR
     Route: 030
     Dates: start: 19940615
  2. FLUTAMIDE [Suspect]
     Indication: PROSTATE CANCER
     Dosage: 250 MG, 3 IN 1 D, PER ORAL
     Route: 048
     Dates: start: 19940609
  3. NIACIN [Concomitant]
  4. CALCIUM (CALCIUM [Concomitant]
  5. LOPRESSOR [Concomitant]

REACTIONS (10)
  - ANAEMIA [None]
  - ARTHRALGIA [None]
  - BLOOD TESTOSTERONE INCREASED [None]
  - DISSEMINATED INTRAVASCULAR COAGULATION [None]
  - FIBRINOLYSIS [None]
  - HAEMATOMA [None]
  - HAEMORRHAGE [None]
  - MICROANGIOPATHY [None]
  - PROSTATIC SPECIFIC ANTIGEN INCREASED [None]
  - RED BLOOD CELL SCHISTOCYTES PRESENT [None]
